FAERS Safety Report 7459809-2 (Version None)
Quarter: 2011Q2

REPORT INFORMATION
  Report Type: 
  Country: None (occurrence: None)
  Receive Date: 20110505
  Receipt Date: 20110420
  Transmission Date: 20111010
  Serious: No
  Sender: FDA-Public Use
  Company Number: US-B.I. PHARMACEUTICALS,INC./RIDGEFIELD-2011-BP-11299BP

PATIENT
  Age: 64 Year
  Sex: Female

DRUGS (5)
  1. SPIRIVA [Suspect]
     Indication: CHRONIC OBSTRUCTIVE PULMONARY DISEASE
     Dosage: 18 MCG
     Route: 055
     Dates: start: 20110416
  2. SYNTHROID [Concomitant]
     Indication: HYPOTHYROIDISM
     Dosage: 50 MCG
     Route: 048
  3. PROPRANOLOL [Concomitant]
     Dosage: 80 MG
     Route: 048
     Dates: end: 20110417
  4. PROPRANOLOL [Concomitant]
     Dosage: 60 MG
     Route: 048
     Dates: start: 20110418
  5. TRANXENE [Concomitant]
     Indication: ANXIETY
     Dosage: 22.5 MG
     Route: 048

REACTIONS (8)
  - PARAESTHESIA [None]
  - TREMOR [None]
  - NAUSEA [None]
  - TEARFULNESS [None]
  - DYSPHONIA [None]
  - HEADACHE [None]
  - ANXIETY [None]
  - CHEST DISCOMFORT [None]
